FAERS Safety Report 23686193 (Version 1)
Quarter: 2024Q1

REPORT INFORMATION
  Report Type: Spontaneous
  Country: ES (occurrence: ES)
  Receive Date: 20240329
  Receipt Date: 20240329
  Transmission Date: 20240410
  Serious: Yes (Other)
  Sender: FDA-Public Use
  Company Number: None

PATIENT
  Age: 51 Year
  Sex: Male

DRUGS (1)
  1. IRINOTECAN [Suspect]
     Active Substance: IRINOTECAN
     Indication: Adenocarcinoma of colon
     Dosage: 280 MILLIGRAM, SINGLE
     Route: 042
     Dates: start: 20240219, end: 20240219

REACTIONS (1)
  - Oedema mouth [Recovered/Resolved]

NARRATIVE: CASE EVENT DATE: 20240219
